FAERS Safety Report 5666286-0 (Version None)
Quarter: 2008Q1

REPORT INFORMATION
  Report Type: 
  Country: None (occurrence: None)
  Receive Date: 20080314
  Receipt Date: 20071211
  Transmission Date: 20080703
  Serious: No
  Sender: FDA-Public Use
  Company Number: US-ABBOTT-07P-163-0430329-00

PATIENT
  Age: 55 Year
  Sex: Male

DRUGS (1)
  1. HUMIRA [Suspect]
     Indication: ARTHRITIS

REACTIONS (6)
  - ANGER [None]
  - COMMUNICATION DISORDER [None]
  - DEPRESSED MOOD [None]
  - GAIT DISTURBANCE [None]
  - JOINT SWELLING [None]
  - MOOD ALTERED [None]
